FAERS Safety Report 5098324-0 (Version None)
Quarter: 2006Q3

REPORT INFORMATION
  Report Type: 
  Country: None (occurrence: None)
  Receive Date: 20060906
  Receipt Date: 20060901
  Transmission Date: 20061208
  Serious: Yes (Hospitalization)
  Sender: FDA-Public Use
  Company Number: DE-BOEHRINGER INGELHEIM PHARMACEUTICALS, INC.-2006-DE-04616DE

PATIENT
  Sex: Female

DRUGS (1)
  1. MICARDIS HCT [Suspect]
     Dosage: 80 MG TELMISARTAN, 12,5 MG HCT

REACTIONS (2)
  - BLOOD PRESSURE INCREASED [None]
  - HYPERTENSIVE CRISIS [None]
